FAERS Safety Report 11395258 (Version 1)
Quarter: 2015Q3

REPORT INFORMATION
  Report Type: Spontaneous
  Country: CN (occurrence: CN)
  Receive Date: 20150819
  Receipt Date: 20150819
  Transmission Date: 20151125
  Serious: Yes (Hospitalization)
  Sender: FDA-Public Use
  Company Number: CN-MYLANLABS-2015M1027180

PATIENT

DRUGS (2)
  1. BROMOCRIPTINE [Suspect]
     Active Substance: BROMOCRIPTINE
     Dosage: 2.5 MG, TID
     Route: 065
  2. BROMOCRIPTINE [Suspect]
     Active Substance: BROMOCRIPTINE
     Indication: PROLACTINOMA
     Dosage: DOSE INCREASED TO 2.5 MG 3 TIMES A DAY
     Route: 065

REACTIONS (2)
  - Visual pathway disorder [Recovering/Resolving]
  - Brain herniation [Recovering/Resolving]
